FAERS Safety Report 15780317 (Version 1)
Quarter: 2019Q1

REPORT INFORMATION
  Report Type: Spontaneous
  Country: US (occurrence: US)
  Receive Date: 20190102
  Receipt Date: 20190102
  Transmission Date: 20190417
  Serious: No
  Sender: FDA-Public Use
  Company Number: US-ACCORD-092598

PATIENT
  Age: 17 Year
  Sex: Male
  Weight: 84.82 kg

DRUGS (1)
  1. ARIPIPRAZOLE. [Suspect]
     Active Substance: ARIPIPRAZOLE
     Indication: PSYCHOTIC DISORDER
     Dosage: ALSO RECEIVED ARIPIPRAZOLE (LOT NO: PX02703) ON 31-OCT-2018,??ALSO 20 MG
     Route: 048
     Dates: start: 20181018

REACTIONS (4)
  - Asthenia [Not Recovered/Not Resolved]
  - Somnolence [Not Recovered/Not Resolved]
  - Insomnia [Not Recovered/Not Resolved]
  - Wrong technique in product usage process [Unknown]
